FAERS Safety Report 6371241-1 (Version None)
Quarter: 2009Q3

REPORT INFORMATION
  Report Type: 
  Country: None (occurrence: None)
  Receive Date: 20090923
  Receipt Date: 20071106
  Transmission Date: 20100115
  Serious: Yes (Other)
  Sender: FDA-Public Use
  Company Number: US-ASTRAZENECA-2007UW03860

PATIENT
  Age: 19055 Day
  Sex: Female
  Weight: 97.5 kg

DRUGS (10)
  1. SEROQUEL [Suspect]
     Indication: DEPRESSION
     Route: 048
     Dates: start: 20040401, end: 20060501
  2. SEROQUEL [Suspect]
     Route: 048
     Dates: start: 20060209
  3. ASPIRIN [Concomitant]
     Dates: start: 20060209
  4. LOTREL [Concomitant]
     Dosage: 10-20 MG DAILY
     Dates: start: 20060209
  5. ESTRADIOL [Concomitant]
     Dates: start: 20060202
  6. ZOLOFT [Concomitant]
     Dates: start: 20040204
  7. ABILIFY [Concomitant]
     Dates: start: 20060519
  8. LIPITOR [Concomitant]
     Dates: start: 20050823
  9. LISINOPRIL [Concomitant]
     Dates: start: 20061002
  10. HYDROCHLOROTHIAZIDE [Concomitant]
     Dates: start: 20061002

REACTIONS (2)
  - DIABETIC KETOACIDOSIS [None]
  - TYPE 2 DIABETES MELLITUS [None]
